FAERS Safety Report 4304567-3 (Version None)
Quarter: 2004Q1

REPORT INFORMATION
  Report Type: 
  Country: None (occurrence: None)
  Receive Date: 20040224
  Receipt Date: 20040210
  Transmission Date: 20041129
  Serious: Yes (Other)
  Sender: FDA-Public Use
  Company Number: NSADSS2002022161

PATIENT
  Age: 63 Year
  Sex: Male

DRUGS (4)
  1. REMICADE [Suspect]
     Indication: RHEUMATOID ARTHRITIS
     Dosage: 4 MG/KG, INTRAVENOUS DRIP
     Route: 041
     Dates: start: 20011214
  2. REMICADE [Suspect]
     Indication: RHEUMATOID ARTHRITIS
     Dosage: 4 MG/KG, INTRAVENOUS DRIP
     Route: 041
     Dates: start: 20030712
  3. METHOTREXATE [Concomitant]
  4. LEFLUNOMIDE (LEFLUNOMIDE) [Concomitant]

REACTIONS (2)
  - DEMYELINATION [None]
  - TOXIC EPIDERMAL NECROLYSIS [None]
